FAERS Safety Report 7715310-X (Version None)
Quarter: 2011Q3

REPORT INFORMATION
  Report Type: 
  Country: None (occurrence: None)
  Receive Date: 20110829
  Receipt Date: 20110826
  Transmission Date: 20111222
  Serious: Yes (Death, Other)
  Sender: FDA-Public Use
  Company Number: PHHY2011TH72217

PATIENT
  Age: 77 Year
  Sex: Female

DRUGS (1)
  1. ZOLEDRONOC ACID [Suspect]
     Indication: OSTEOPOROSIS
     Dosage: 5 MG ONCE YEARLY
     Route: 042

REACTIONS (4)
  - FALL [None]
  - HIP FRACTURE [None]
  - MUSCULAR WEAKNESS [None]
  - DEATH [None]
